FAERS Safety Report 12934459 (Version 1)
Quarter: 2016Q4

REPORT INFORMATION
  Report Type: Spontaneous
  Country: US (occurrence: US)
  Receive Date: 20161111
  Receipt Date: 20161111
  Transmission Date: 20170207
  Serious: No
  Sender: FDA-Public Use
  Company Number: US-PFIZER INC-2016523598

PATIENT
  Age: 54 Year
  Sex: Female

DRUGS (2)
  1. ADVIL [Suspect]
     Active Substance: IBUPROFEN
     Indication: PAIN
     Dosage: UNK UNK, ALTERNATE DAY
     Dates: start: 2011
  2. MOTRIN [Suspect]
     Active Substance: IBUPROFEN
     Dosage: 800 MG, UNK

REACTIONS (6)
  - Pain in extremity [Unknown]
  - Intentional product misuse [Unknown]
  - Malaise [Unknown]
  - Hypokinesia [Unknown]
  - Drug ineffective [Unknown]
  - Product commingling [Unknown]
